FAERS Safety Report 4585987-9 (Version None)
Quarter: 2005Q1

REPORT INFORMATION
  Report Type: 
  Country: None (occurrence: None)
  Receive Date: 20050125
  Receipt Date: 20040903
  Transmission Date: 20050727
  Serious: No
  Sender: FDA-Public Use
  Company Number: USA040568293

PATIENT
  Age: 87 Year
  Sex: Male

DRUGS (1)
  1. FORTEO [Suspect]
     Indication: OSTEOPOROSIS
     Dates: start: 20040301

REACTIONS (6)
  - ARTHRALGIA [None]
  - BACK PAIN [None]
  - DIFFICULTY IN WALKING [None]
  - DIZZINESS [None]
  - HEART RATE INCREASED [None]
  - MUSCLE SPASMS [None]
